FAERS Safety Report 4864642-1 (Version None)
Quarter: 2005Q4

REPORT INFORMATION
  Report Type: 
  Country: None (occurrence: None)
  Receive Date: 20051201
  Receipt Date: 20050705
  Transmission Date: 20060501
  Serious: No
  Sender: FDA-Public Use
  Company Number: 2005PV000243

PATIENT
  Age: 49 Year
  Sex: Female
  Weight: 85.7298 kg

DRUGS (5)
  1. BYETTA [Suspect]
     Indication: DIABETES MELLITUS NON-INSULIN-DEPENDENT
     Dosage: 5 MCG; BID; SC
     Route: 058
     Dates: start: 20050629
  2. METFORMIN [Concomitant]
  3. GLIPIZIDE [Concomitant]
  4. LANTUS [Concomitant]
  5. REGLAN [Concomitant]

REACTIONS (3)
  - BLOOD GLUCOSE INCREASED [None]
  - CONSTIPATION [None]
  - NAUSEA [None]
